FAERS Safety Report 7190195-1 (Version None)
Quarter: 2010Q4

REPORT INFORMATION
  Report Type: 
  Country: None (occurrence: None)
  Receive Date: 20101223
  Receipt Date: 20101215
  Transmission Date: 20110411
  Serious: Yes (Other)
  Sender: FDA-Public Use
  Company Number: US-US-EMD SERONO, INC.-7032516

PATIENT
  Sex: Female
  Weight: 43 kg

DRUGS (2)
  1. REBIF [Suspect]
     Indication: MULTIPLE SCLEROSIS
     Route: 058
     Dates: start: 20101128
  2. ANXIETY MEDICATION [Concomitant]
     Indication: ANXIETY

REACTIONS (6)
  - DEPRESSED MOOD [None]
  - INJECTION SITE PAIN [None]
  - OCULAR HYPERAEMIA [None]
  - OFF LABEL USE [None]
  - PANIC ATTACK [None]
  - PARTIAL SEIZURES [None]
